FAERS Safety Report 9117087 (Version 2)
Quarter: 2013Q1

REPORT INFORMATION
  Report Type: Spontaneous
  Country: GB (occurrence: GB)
  Receive Date: 20130225
  Receipt Date: 20130306
  Transmission Date: 20140127
  Serious: Yes (Death, Life-Threatening, Other)
  Sender: FDA-Public Use
  Company Number: GB-B.I. PHARMACEUTICALS,INC./RIDGEFIELD-2013-UK-00247UK

PATIENT
  Age: 81 Year
  Sex: Male
  Weight: 54 kg

DRUGS (10)
  1. SPIRIVA RESPIMAT [Suspect]
     Indication: CHRONIC OBSTRUCTIVE PULMONARY DISEASE
     Dosage: 2 PUFFS DAILY
     Route: 055
     Dates: start: 20121116
  2. ADCAL D3 [Concomitant]
     Indication: OSTEOPENIA
     Dosage: BD
     Route: 048
     Dates: start: 20121113, end: 20121211
  3. ALFUZOSIN [Concomitant]
     Dates: start: 20121009, end: 20121208
  4. BICALUTAMIDE [Concomitant]
     Indication: PROSTATE CANCER
     Dosage: 150 MG
     Route: 048
     Dates: start: 20121018, end: 20121211
  5. OMEPRAZOLE [Concomitant]
     Indication: PROPHYLAXIS
     Dosage: 20 MG
     Route: 048
     Dates: start: 20121106, end: 20121204
  6. PREDNISOLONE [Concomitant]
     Dates: start: 20121107, end: 20121117
  7. SERETIDE [Concomitant]
     Indication: CHRONIC OBSTRUCTIVE PULMONARY DISEASE
     Dosage: BD
     Route: 055
     Dates: start: 20121023, end: 20121217
  8. TIOTROPIUM [Concomitant]
     Dates: start: 20121023, end: 20121216
  9. UNIPHYLLIN [Concomitant]
     Indication: CHRONIC OBSTRUCTIVE PULMONARY DISEASE
     Dosage: 600 MG
     Route: 048
     Dates: start: 20121023, end: 20121217
  10. VENTOLIN EVOHALER [Concomitant]
     Indication: CHRONIC OBSTRUCTIVE PULMONARY DISEASE
     Route: 055
     Dates: start: 20121019, end: 20130108

REACTIONS (2)
  - Acute myocardial infarction [Fatal]
  - Bronchopneumonia [Fatal]
